FAERS Safety Report 26038483 (Version 1)
Quarter: 2025Q4

REPORT INFORMATION
  Report Type: Other
  Country: EU (occurrence: US)
  Receive Date: 20251113
  Receipt Date: 20251113
  Transmission Date: 20260117
  Serious: Yes (Hospitalization, Other)
  Sender: ALVOGEN
  Company Number: EU-ALVOGEN-2025098978

PATIENT
  Age: 36 Year
  Sex: Female

DRUGS (5)
  1. DEXAMETHASONE [Suspect]
     Active Substance: DEXAMETHASONE
     Indication: Plasma cell myeloma
     Dosage: FOUR SERIES OF CVD TREATMENT
  2. CYCLOPHOSPHAMIDE [Suspect]
     Active Substance: CYCLOPHOSPHAMIDE
     Indication: Plasma cell myeloma
     Dosage: FOUR SERIES OF CVD TREATMENT
  3. BORTEZOMIB [Suspect]
     Active Substance: BORTEZOMIB
     Indication: Plasma cell myeloma
     Dosage: FOUR SERIES OF CVD TREATMENT
  4. PREDNISOLONE [Concomitant]
     Active Substance: PREDNISOLONE
     Indication: Product used for unknown indication
  5. MORPHINE [Concomitant]
     Active Substance: MORPHINE
     Indication: Product used for unknown indication
     Dosage: AFTER FOURTH SERIES OF CVD DAILY USE EXCEEDED 250 MG

REACTIONS (6)
  - Osteomyelitis [Unknown]
  - Sickle cell anaemia with crisis [Unknown]
  - Pulmonary hypertension [Unknown]
  - Asthenia [Unknown]
  - Dehydration [Unknown]
  - Swollen tongue [Unknown]
